FAERS Safety Report 25892614 (Version 1)
Quarter: 2025Q4

REPORT INFORMATION
  Report Type: Spontaneous
  Country: GB (occurrence: GB)
  Receive Date: 20251007
  Receipt Date: 20251007
  Transmission Date: 20260118
  Serious: Yes (Hospitalization, Other)
  Sender: REGENERON
  Company Number: GB-REGENERON PHARMACEUTICALS, INC.-2025-156284

PATIENT
  Age: 56 Year
  Sex: Male

DRUGS (1)
  1. LIBTAYO [Suspect]
     Active Substance: CEMIPLIMAB-RWLC
     Indication: Squamous cell carcinoma
     Dosage: UNK
     Dates: start: 2019, end: 202107

REACTIONS (7)
  - Pneumonia aspiration [Unknown]
  - Sepsis [Unknown]
  - Cranial nerve disorder [Unknown]
  - Intervertebral discitis [Unknown]
  - Staphylococcal bacteraemia [Unknown]
  - Endocarditis [Unknown]
  - Osteoradionecrosis [Unknown]

NARRATIVE: CASE EVENT DATE: 20230101
